FAERS Safety Report 23216942 (Version 3)
Quarter: 2023Q4

REPORT INFORMATION
  Report Type: Other
  Country: US (occurrence: US)
  Receive Date: 20231122
  Receipt Date: 20231224
  Transmission Date: 20240110
  Serious: Yes (Hospitalization)
  Sender: FDA-Public Use
  Company Number: US-TRAVERE-2023TVT00558

PATIENT
  Age: 38 Year
  Sex: Male

DRUGS (11)
  1. FILSPARI [Suspect]
     Active Substance: SPARSENTAN
     Indication: IgA nephropathy
     Dosage: 400 MG
     Route: 048
  2. LOSARTAN [Concomitant]
     Active Substance: LOSARTAN
  3. FLUOXETINE [Concomitant]
     Active Substance: FLUOXETINE HYDROCHLORIDE
  4. ATORVASTATIN [Concomitant]
     Active Substance: ATORVASTATIN
  5. BACLOFEN [Concomitant]
     Active Substance: BACLOFEN
  6. FLUTICASONE [Concomitant]
     Active Substance: FLUTICASONE
  7. NURTEC ODT [Concomitant]
     Active Substance: RIMEGEPANT SULFATE
  8. SUMATRIPTAN [Concomitant]
     Active Substance: SUMATRIPTAN
  9. XYZAL [Concomitant]
     Active Substance: LEVOCETIRIZINE DIHYDROCHLORIDE
  10. Onabotulinumtoxin-A [Concomitant]
  11. ALLOPURINOL [Concomitant]
     Active Substance: ALLOPURINOL

REACTIONS (1)
  - Small intestinal obstruction [Recovered/Resolved]
